FAERS Safety Report 8522713-2 (Version None)
Quarter: 2012Q3

REPORT INFORMATION
  Report Type: 
  Country: None (occurrence: None)
  Receive Date: 20120719
  Receipt Date: 20120713
  Transmission Date: 20120928
  Serious: Yes (Other)
  Sender: FDA-Public Use
  Company Number: DE-GLAXOSMITHKLINE-B0808346A

PATIENT
  Sex: Female
  Weight: 49 kg

DRUGS (3)
  1. XELODA [Suspect]
     Indication: BREAST CANCER METASTATIC
     Dosage: 1000MG TWICE PER DAY
     Route: 048
     Dates: start: 20111205, end: 20120402
  2. OXYCODONE HCL [Concomitant]
     Dosage: 30MG TWICE PER DAY
     Route: 048
     Dates: start: 20110101
  3. LAPATINIB [Suspect]
     Indication: BREAST CANCER METASTATIC
     Route: 065
     Dates: start: 20111205, end: 20120402

REACTIONS (5)
  - FATIGUE [None]
  - PAIN IN EXTREMITY [None]
  - DISEASE PROGRESSION [None]
  - RASH [None]
  - HEPATOTOXICITY [None]
